FAERS Safety Report 9000318 (Version 1)
Quarter: 2013Q1

REPORT INFORMATION
  Report Type: Spontaneous
  Country: US (occurrence: None)
  Receive Date: 20130102
  Receipt Date: 20130102
  Transmission Date: 20140127
  Serious: Yes (Hospitalization)
  Sender: FDA-Public Use
  Company Number: None

PATIENT
  Sex: Male
  Weight: 73 kg

DRUGS (3)
  1. FLUOROURACIL [Suspect]
     Dates: end: 29121221
  2. LEUCOVORIN CALCIUM [Suspect]
     Dates: end: 20121219
  3. ELOXATIN [Suspect]
     Dates: end: 20121219

REACTIONS (1)
  - Chest pain [None]
